FAERS Safety Report 5718013-6 (Version None)
Quarter: 2008Q2

REPORT INFORMATION
  Report Type: 
  Country: None (occurrence: None)
  Receive Date: 20080425
  Receipt Date: 20080423
  Transmission Date: 20081010
  Serious: Yes (Hospitalization)
  Sender: FDA-Public Use
  Company Number: B0517814A

PATIENT
  Age: 65 Year
  Sex: Female

DRUGS (3)
  1. ZOVIRAX [Suspect]
     Indication: HERPES ZOSTER
     Route: 048
  2. LENDORMIN [Concomitant]
     Route: 048
  3. LORMETAZEPAM [Concomitant]
     Route: 048

REACTIONS (4)
  - DYSLALIA [None]
  - HALLUCINATION [None]
  - HALLUCINATION, AUDITORY [None]
  - HALLUCINATION, VISUAL [None]
